FAERS Safety Report 7386105-4 (Version None)
Quarter: 2011Q1

REPORT INFORMATION
  Report Type: 
  Country: None (occurrence: None)
  Receive Date: 20110331
  Receipt Date: 20110324
  Transmission Date: 20110831
  Serious: Yes (Death, Other)
  Sender: FDA-Public Use
  Company Number: TW-JNJFOC-20110305151

PATIENT
  Age: 16 Year
  Sex: Male

DRUGS (5)
  1. IFOSFAMIDE [Concomitant]
     Indication: BONE SARCOMA
     Dosage: 75G/M2
     Route: 065
  2. DOXORUBICIN HCL [Suspect]
     Indication: BONE SARCOMA
     Route: 042
  3. ETOPOSIDE [Suspect]
     Indication: BONE SARCOMA
     Route: 065
  4. CISPLATIN [Concomitant]
     Indication: BONE SARCOMA
     Route: 065
  5. METHOTREXATE [Concomitant]
     Indication: BONE SARCOMA
     Route: 065

REACTIONS (3)
  - OFF LABEL USE [None]
  - SEPTIC SHOCK [None]
  - ACUTE LEUKAEMIA [None]
